FAERS Safety Report 4851125-8 (Version None)
Quarter: 2005Q4

REPORT INFORMATION
  Report Type: 
  Country: None (occurrence: None)
  Receive Date: 20051130
  Receipt Date: 20050823
  Transmission Date: 20060501
  Serious: No
  Sender: FDA-Public Use
  Company Number: FABR-11212

PATIENT
  Age: 54 Year
  Sex: Male
  Weight: 76 kg

DRUGS (10)
  1. FABRAZYME [Suspect]
     Indication: FABRY'S DISEASE
     Dosage: 37.8 MG Q2WKS IV
     Route: 042
     Dates: start: 20050823
  2. FABRAZYME [Suspect]
     Indication: FABRY'S DISEASE
     Dosage: 76 MG Q2WKS IV
     Route: 042
     Dates: start: 20031104, end: 20050809
  3. LEVAQUIN [Concomitant]
  4. CLEOCIN [Concomitant]
  5. NEORAL [Concomitant]
  6. CELLCEPT [Concomitant]
  7. PREDNISONE [Concomitant]
  8. LASIX [Concomitant]
  9. COUMADIN [Concomitant]
  10. LANOXIN [Concomitant]

REACTIONS (4)
  - BLOOD PRESSURE INCREASED [None]
  - CHILLS [None]
  - FLANK PAIN [None]
  - OXYGEN SATURATION DECREASED [None]
